FAERS Safety Report 13713655 (Version 1)
Quarter: 2017Q3

REPORT INFORMATION
  Report Type: Report from Study
  Country: US (occurrence: US)
  Receive Date: 20170704
  Receipt Date: 20170704
  Transmission Date: 20171127
  Serious: Yes (Hospitalization, Other)
  Sender: FDA-Public Use
  Company Number: US-AMGEN-USASL2017097956

PATIENT
  Age: 73 Year
  Sex: Female

DRUGS (1)
  1. ENBREL [Suspect]
     Active Substance: ETANERCEPT
     Indication: RHEUMATOID ARTHRITIS
     Dosage: 50 MG, QWK
     Route: 065
     Dates: start: 2010

REACTIONS (9)
  - Fall [Unknown]
  - Upper limb fracture [Unknown]
  - Rheumatoid arthritis [Not Recovered/Not Resolved]
  - Hypoacusis [Unknown]
  - Underdose [Unknown]
  - Drug dose omission [Unknown]
  - Carotid artery occlusion [Unknown]
  - Blood pressure increased [Unknown]
  - Accidental exposure to product [Unknown]

NARRATIVE: CASE EVENT DATE: 201706
